FAERS Safety Report 5021035-4 (Version None)
Quarter: 2006Q2

REPORT INFORMATION
  Report Type: 
  Country: None (occurrence: None)
  Receive Date: 20060605
  Receipt Date: 20060526
  Transmission Date: 20061013
  Serious: Yes (Other)
  Sender: FDA-Public Use
  Company Number: 2006069783

PATIENT
  Age: 81 Year
  Sex: Female

DRUGS (5)
  1. ZOLOFT [Suspect]
     Indication: DEPRESSION
     Dosage: 25 MG (25 MG, 1 IN 1 D), ORAL
     Route: 048
     Dates: start: 19930101
  2. DESYREL [Suspect]
     Indication: ILL-DEFINED DISORDER
     Dosage: ORAL
     Route: 048
  3. MULTIVITAMIN [Concomitant]
  4. VITAMIN C (VITAMIN C) [Concomitant]
  5. VITAMIN E [Concomitant]

REACTIONS (8)
  - ANXIETY [None]
  - CONDITION AGGRAVATED [None]
  - DEPRESSION [None]
  - FALL [None]
  - MUSCULOSKELETAL STIFFNESS [None]
  - OSTEOPENIA [None]
  - PATELLA FRACTURE [None]
  - WRIST FRACTURE [None]
